FAERS Safety Report 16789299 (Version 1)
Quarter: 2019Q3

REPORT INFORMATION
  Report Type: Spontaneous
  Country: US (occurrence: US)
  Receive Date: 20190910
  Receipt Date: 20190910
  Transmission Date: 20191005
  Serious: No
  Sender: FDA-Public Use
  Company Number: US-BRISTOL-MYERS SQUIBB COMPANY-BMS-2019-088004

PATIENT
  Age: 53 Year
  Sex: Female
  Weight: 87.9 kg

DRUGS (1)
  1. ORENCIA [Suspect]
     Active Substance: ABATACEPT
     Indication: RHEUMATOID ARTHRITIS
     Dosage: EVERY FOUR WEEKS
     Route: 042
     Dates: start: 20190906

REACTIONS (5)
  - Pyrexia [Unknown]
  - Cough [Unknown]
  - Hyperhidrosis [Unknown]
  - Malaise [Unknown]
  - Breath sounds abnormal [Unknown]

NARRATIVE: CASE EVENT DATE: 20190906
